FAERS Safety Report 7219729-5 (Version None)
Quarter: 2011Q1

REPORT INFORMATION
  Report Type: 
  Country: None (occurrence: None)
  Receive Date: 20110111
  Receipt Date: 20110106
  Transmission Date: 20110831
  Serious: Yes (Death)
  Sender: FDA-Public Use
  Company Number: PHHY2011MX01091

PATIENT
  Age: 48 Year
  Sex: Male

DRUGS (8)
  1. PREDNISONE [Concomitant]
  2. CYCLOSPORINE [Suspect]
     Indication: RENAL TRANSPLANT
     Dosage: UNK
  3. STEROIDS NOS [Concomitant]
     Indication: IMMUNOSUPPRESSANT DRUG THERAPY
  4. SULFAMETHOXAZOLE AND TRIMETHOPRIM [Concomitant]
     Dosage: 1 DF, QD
  5. MYCOPHENOLATE MOFETIL [Concomitant]
     Indication: IMMUNOSUPPRESSANT DRUG THERAPY
  6. AZATHIOPRINE [Concomitant]
     Indication: IMMUNOSUPPRESSANT DRUG THERAPY
  7. ACYCLOVIR [Concomitant]
     Dosage: 400 MG, QD
  8. CEFUROXIME [Concomitant]
     Dosage: 750 MG, THREE DOSE
     Route: 042

REACTIONS (8)
  - PSEUDOMONAS INFECTION [None]
  - BACTERAEMIA [None]
  - ENTEROCOCCAL INFECTION [None]
  - PNEUMONIA [None]
  - STAPHYLOCOCCAL BACTERAEMIA [None]
  - URINARY TRACT INFECTION [None]
  - ESCHERICHIA INFECTION [None]
  - LEGIONELLA INFECTION [None]
